FAERS Safety Report 5233117-2 (Version None)
Quarter: 2007Q1

REPORT INFORMATION
  Report Type: 
  Country: None (occurrence: None)
  Receive Date: 20061204
  Receipt Date: 20060913
  Transmission Date: 20070707
  Serious: No
  Sender: FDA-Public Use
  Company Number: 2006-BP-12367PF

PATIENT
  Age: 63 Year
  Sex: Female
  Weight: 68.04 kg

DRUGS (9)
  1. SPIRIVA [Suspect]
     Dosage: (18 MCG),IH
     Dates: end: 20060910
  2. CHANIX (ALL OTHER THERAPEUTIC PRODUCTS) [Suspect]
     Indication: SMOKING CESSATION THERAPY
     Dosage: SEE IMAGE
     Route: 048
     Dates: start: 20060905
  3. CHANIX (ALL OTHER THERAPEUTIC PRODUCTS) [Suspect]
     Indication: SMOKING CESSATION THERAPY
     Dosage: SEE IMAGE
     Route: 048
     Dates: start: 20060912
  4. PREDNISONE TAB [Suspect]
     Indication: LUNG INFECTION
     Dates: start: 20060817, end: 20060901
  5. ADVAIR DISCUS(SERETIDE /01420901/) [Suspect]
     Dosage: (NR FORM: DISCUS)
     Dates: end: 20060101
  6. XOPENEX [Concomitant]
  7. XANAX [Concomitant]
  8. MULTI-VITAMINS [Concomitant]
  9. ZYRTEC D (CIRRUS /01318001/) [Concomitant]

REACTIONS (5)
  - FUNGAL INFECTION [None]
  - INSOMNIA [None]
  - LUNG INFECTION [None]
  - MALAISE [None]
  - VISION BLURRED [None]
